FAERS Safety Report 19577126 (Version 1)
Quarter: 2021Q3

REPORT INFORMATION
  Report Type: Other
  Country: ES (occurrence: ES)
  Receive Date: 20210719
  Receipt Date: 20210719
  Transmission Date: 20211014
  Serious: Yes (Other)
  Sender: FDA-Public Use
  Company Number: ES-HARMONY BIOSCIENCES-2021HMY01274

PATIENT
  Age: 42 Year
  Sex: Female
  Weight: 74 kg

DRUGS (16)
  1. IMODIUM [Concomitant]
     Active Substance: LOPERAMIDE HYDROCHLORIDE
  2. DIFFU?K [Concomitant]
     Active Substance: POTASSIUM CHLORIDE
  3. CELLCEPT [Concomitant]
     Active Substance: MYCOPHENOLATE MOFETIL\MYCOPHENOLATE MOFETIL HYDROCHLORIDE
  4. WELLVONE [Concomitant]
     Active Substance: ATOVAQUONE
  5. TEMERIT [Concomitant]
     Active Substance: NEBIVOLOL
  6. CERTICAN [Concomitant]
     Active Substance: EVEROLIMUS
  7. MOTILIUM [Concomitant]
     Active Substance: DOMPERIDONE
  8. LEXOMIL [Concomitant]
     Active Substance: BROMAZEPAM
  9. SOLUPRED [Concomitant]
  10. ZELITREX [Concomitant]
     Active Substance: VALACYCLOVIR HYDROCHLORIDE
  11. HIZENTRA [Concomitant]
     Active Substance: HUMAN IMMUNOGLOBULIN G
  12. INEXIUM [Concomitant]
     Active Substance: ESOMEPRAZOLE
  13. SMECTA [Concomitant]
     Active Substance: MONTMORILLONITE
  14. MICROLAX [Concomitant]
  15. WAKIX [Suspect]
     Active Substance: PITOLISANT HYDROCHLORIDE
     Indication: NARCOLEPSY
     Dosage: 9 MG, 1X/DAY
     Route: 048
     Dates: start: 20210119, end: 20210212
  16. STILNOX [Concomitant]
     Active Substance: ZOLPIDEM TARTRATE

REACTIONS (2)
  - Palpitations [Recovered/Resolved]
  - Chest pain [Recovered/Resolved]

NARRATIVE: CASE EVENT DATE: 20210119
